FAERS Safety Report 9358080 (Version 1)
Quarter: 2013Q2

REPORT INFORMATION
  Report Type: Spontaneous
  Country: US (occurrence: US)
  Receive Date: 20130620
  Receipt Date: 20130620
  Transmission Date: 20140414
  Serious: No
  Sender: FDA-Public Use
  Company Number: US-PFIZER INC-2013183271

PATIENT
  Age: 47 Year
  Sex: Female
  Weight: 102.4 kg

DRUGS (4)
  1. LYRICA [Suspect]
     Indication: NEURALGIA
     Dosage: 75MG IN MORNING AND 150MG IN NIGHT
     Route: 048
     Dates: start: 2012, end: 20130614
  2. GABAPENTIN [Suspect]
     Dosage: 100 MG, 2X/DAY
     Route: 048
  3. GABAPENTIN [Suspect]
     Dosage: 100 MG, 2X/DAY
     Route: 048
     Dates: start: 20130615
  4. CYMBALTA [Concomitant]
     Dosage: UNK

REACTIONS (5)
  - Confusional state [Unknown]
  - Weight increased [Unknown]
  - Somnolence [Unknown]
  - Drug ineffective [Unknown]
  - Drug effect incomplete [Unknown]
